FAERS Safety Report 5882822-3 (Version None)
Quarter: 2008Q3

REPORT INFORMATION
  Report Type: 
  Country: None (occurrence: None)
  Receive Date: 20080913
  Receipt Date: 20080825
  Transmission Date: 20090109
  Serious: No
  Sender: FDA-Public Use
  Company Number: US-ABBOTT-08P-163-0471168-00

PATIENT
  Sex: Female

DRUGS (4)
  1. HUMIRA [Suspect]
     Indication: CROHN'S DISEASE
     Route: 058
     Dates: start: 20080807, end: 20080807
  2. HUMIRA [Suspect]
     Route: 058
  3. SULFASALAZINE [Concomitant]
     Indication: CROHN'S DISEASE
     Dosage: 500MG X 8/DAY
     Route: 048
     Dates: start: 20070101
  4. ANXIOLYTICS [Concomitant]
     Indication: ANXIETY
     Route: 048

REACTIONS (8)
  - CROHN'S DISEASE [None]
  - DIARRHOEA HAEMORRHAGIC [None]
  - HEADACHE [None]
  - HYPOAESTHESIA [None]
  - INFECTION [None]
  - PAIN [None]
  - VOMITING [None]
  - WHITE BLOOD CELL COUNT INCREASED [None]
